FAERS Safety Report 20771596 (Version 1)
Quarter: 2022Q2

REPORT INFORMATION
  Report Type: Spontaneous
  Country: GB (occurrence: GB)
  Receive Date: 20220430
  Receipt Date: 20220430
  Transmission Date: 20220720
  Serious: Yes (Other)
  Sender: FDA-Public Use
  Company Number: None

PATIENT
  Age: 67 Year
  Sex: Female
  Weight: 94 kg

DRUGS (17)
  1. PRAVASTATIN [Suspect]
     Active Substance: PRAVASTATIN
     Dosage: 10 MILLIGRAM DAILY; TAKE AT NIGHT, DURATION-40 DAYS
     Dates: start: 20220309, end: 20220418
  2. ALENDRONIC ACID [Concomitant]
     Active Substance: ALENDRONIC ACID
     Dosage: 1 DF, FREQUENCY TIME- 1 WEEK
     Dates: start: 20200429
  3. CALCIUM CARBONATE\CHOLECALCIFEROL [Concomitant]
     Active Substance: CALCIUM CARBONATE\CHOLECALCIFEROL
     Dosage: 1 DOSAGE FORMS DAILY;
     Dates: start: 20190719
  4. CARBAMAZEPINE [Concomitant]
     Active Substance: CARBAMAZEPINE
     Dosage: 3 DOSAGE FORMS DAILY; UNIT DOSE: 1 DF, FREQUENCY - 3 IN1 DAY
     Dates: start: 20190719
  5. CARBOCYSTEINE [Concomitant]
     Active Substance: CARBOCYSTEINE
     Dosage: 45 ML DAILY; UNIT DOSE: 15 ML, FREQUENCY - 3 IN1 DAY
     Dates: start: 20190719
  6. COCODAMOL [Concomitant]
     Active Substance: ACETAMINOPHEN\CODEINE PHOSPHATE
     Dosage: TAKE 1 OR 2, FREQUENCY TIME- 1 DAY, DURATION-12 DAYS
     Dates: start: 20220301, end: 20220313
  7. EZETIMIBE [Concomitant]
     Active Substance: EZETIMIBE
     Dosage: 1 DOSAGE FORMS DAILY; UNIT DOSE :1 DF
     Dates: start: 20220418
  8. IBUPROFEN [Concomitant]
     Active Substance: IBUPROFEN
     Dosage: 3 DOSAGE FORMS DAILY; DURATION- 10DAYS, UNIT DOSE :1 DF, FREQUENCY - 3 IN 1 DAY
     Dates: start: 20220209, end: 20220219
  9. LANSOPRAZOLE [Concomitant]
     Active Substance: LANSOPRAZOLE
     Dosage: 1 DOSAGE FORMS DAILY; UNIT DOSE:1 DF
     Dates: start: 20190719
  10. LISINOPRIL [Concomitant]
     Active Substance: LISINOPRIL
     Dosage: 1 DOSAGE FORMS DAILY; UNIT DOSE:1 DF
     Dates: start: 20190719
  11. MOMETASONE [Concomitant]
     Active Substance: MOMETASONE
     Dosage: UNIT DOSE:2 DF, FREQUENCY TIME- 1 DAY
     Dates: start: 20190719
  12. MONTELUKAST [Concomitant]
     Active Substance: MONTELUKAST SODIUM
     Dosage: 1 DOSAGE FORMS DAILY; TAKE AT NIGHT
     Dates: start: 20190719
  13. AZELASTINE HYDROCHLORIDE [Concomitant]
     Active Substance: AZELASTINE HYDROCHLORIDE
     Dosage: 2 DOSAGE FORMS DAILY; UNIT DOSE:1 DF, FREQUENCY - 2 IN1 DAY
     Route: 055
     Dates: start: 20190719
  14. ALBUTEROL [Concomitant]
     Active Substance: ALBUTEROL
     Dosage: TAKE 3-4 TIMES, UNIT DOSE: 1 DF, FREQUENCY TIME- 1 DAY
     Route: 055
     Dates: start: 20190719
  15. SYMBICORT [Concomitant]
     Active Substance: BUDESONIDE\FORMOTEROL FUMARATE DIHYDRATE
     Dosage: 4 DOSAGE FORMS DAILY; UNIT DOSE:2 DF, FREQUENCY - 2 IN1 DAY
     Route: 055
     Dates: start: 20190719
  16. TIOTROPIUM [Concomitant]
     Active Substance: TIOTROPIUM
     Dosage: 1 DOSAGE FORMS DAILY; UNIT DOSE:1 DF
     Route: 055
     Dates: start: 20180521
  17. VENTOLIN [Concomitant]
     Active Substance: ALBUTEROL SULFATE
     Dosage: TAKE 3-4 TIMES, UNIT DOSE: 1 DF, FREQUENCY TIME- 1 DAY
     Route: 055
     Dates: start: 20180521

REACTIONS (1)
  - Peripheral swelling [Recovered/Resolved]

NARRATIVE: CASE EVENT DATE: 20220418
